FAERS Safety Report 19792627 (Version 2)
Quarter: 2021Q3

REPORT INFORMATION
  Report Type: Spontaneous
  Country: SE (occurrence: SE)
  Receive Date: 20210906
  Receipt Date: 20210923
  Transmission Date: 20211014
  Serious: No
  Sender: FDA-Public Use
  Company Number: SE-ACCORD-237115

PATIENT
  Age: 69 Year
  Sex: Male

DRUGS (4)
  1. FLUOROURACIL. [Suspect]
     Active Substance: FLUOROURACIL
     Indication: SMALL INTESTINE CARCINOMA METASTATIC
     Dates: start: 2019
  2. FOLINIC ACID [Suspect]
     Active Substance: LEUCOVORIN
     Indication: SMALL INTESTINE CARCINOMA METASTATIC
     Dates: start: 2019
  3. DOCETAXEL. [Suspect]
     Active Substance: DOCETAXEL
     Indication: INTESTINAL METASTASIS
     Dates: start: 2019
  4. OXALIPLATIN. [Suspect]
     Active Substance: OXALIPLATIN
     Indication: INTESTINAL METASTASIS
     Dates: start: 2019

REACTIONS (2)
  - Off label use [Unknown]
  - Diarrhoea [Recovered/Resolved]

NARRATIVE: CASE EVENT DATE: 2019
